FAERS Safety Report 5049985-3 (Version None)
Quarter: 2006Q3

REPORT INFORMATION
  Report Type: 
  Country: None (occurrence: None)
  Receive Date: 20060707
  Receipt Date: 20060626
  Transmission Date: 20061208
  Serious: Yes (Hospitalization, Other)
  Sender: FDA-Public Use
  Company Number: 230107M06USA

PATIENT
  Age: 36 Year
  Sex: Female

DRUGS (1)
  1. REBIF [Suspect]
     Indication: MULTIPLE SCLEROSIS
     Dosage: 44 MCG, 3 IN 1 WEEKS, SUBCUTANEOUS
     Route: 058
     Dates: start: 20060325

REACTIONS (5)
  - BACK PAIN [None]
  - HEADACHE [None]
  - INJECTION SITE ERYTHEMA [None]
  - POST PROCEDURAL HYPOTHYROIDISM [None]
  - THYROID CANCER [None]
